FAERS Safety Report 11247233 (Version 1)
Quarter: 2015Q3

REPORT INFORMATION
  Report Type: Report from Study
  Country: BE (occurrence: BE)
  Receive Date: 20150708
  Receipt Date: 20150708
  Transmission Date: 20151125
  Serious: Yes (Other)
  Sender: FDA-Public Use
  Company Number: BE-ROCHE-1598458

PATIENT

DRUGS (2)
  1. HEPARIN [Suspect]
     Active Substance: HEPARIN SODIUM
     Indication: ACUTE MYOCARDIAL INFARCTION
     Dosage: DOSE: 12500 U
     Route: 058
  2. ALTEPLASE [Suspect]
     Active Substance: ALTEPLASE
     Indication: ACUTE MYOCARDIAL INFARCTION
     Route: 065

REACTIONS (7)
  - Myocardial infarction [Unknown]
  - Haemorrhagic stroke [Unknown]
  - Ventricular fibrillation [Unknown]
  - Ischaemic stroke [Unknown]
  - Cerebrovascular accident [Unknown]
  - Cardiogenic shock [Unknown]
  - Haemorrhage [Unknown]
